FAERS Safety Report 18373460 (Version 1)
Quarter: 2020Q4

REPORT INFORMATION
  Report Type: Spontaneous
  Country: HR (occurrence: HR)
  Receive Date: 20201012
  Receipt Date: 20201012
  Transmission Date: 20210114
  Serious: Yes (Other)
  Sender: FDA-Public Use
  Company Number: NVSC2020HR268718

PATIENT
  Sex: Male
  Weight: 60 kg

DRUGS (1)
  1. GILENYA [Suspect]
     Active Substance: FINGOLIMOD HYDROCHLORIDE
     Indication: PROGRESSIVE MULTIPLE SCLEROSIS
     Dosage: 0.5 MG, QD
     Route: 048
     Dates: start: 20160407, end: 20200808

REACTIONS (3)
  - Vision blurred [Recovering/Resolving]
  - Pigmentation disorder [Recovered/Resolved]
  - Skin lesion [Recovered/Resolved]

NARRATIVE: CASE EVENT DATE: 201903
